FAERS Safety Report 24700664 (Version 1)
Quarter: 2024Q4

REPORT INFORMATION
  Report Type: Spontaneous
  Country: US (occurrence: US)
  Receive Date: 20241205
  Receipt Date: 20241205
  Transmission Date: 20250114
  Serious: Yes (Other)
  Sender: ACCORD
  Company Number: US-Accord-458396

PATIENT
  Age: 66 Year
  Sex: Female

DRUGS (1)
  1. MITOMYCIN [Suspect]
     Active Substance: MITOMYCIN
     Indication: Angle closure glaucoma
     Dosage: (0.5 MG/ML, 50 UG IN 0.1 ML)

REACTIONS (2)
  - Retinal toxicity [Unknown]
  - Off label use [Unknown]
